FAERS Safety Report 7938542-4 (Version None)
Quarter: 2011Q4

REPORT INFORMATION
  Report Type: 
  Country: None (occurrence: None)
  Receive Date: 20111123
  Receipt Date: 20111117
  Transmission Date: 20120403
  Serious: Yes (Other)
  Sender: FDA-Public Use
  Company Number: DE-GILEAD-2011-0045825

PATIENT
  Sex: Female

DRUGS (7)
  1. BISOPROLOL FUMARATE [Concomitant]
     Dosage: 7.5 MG, UNK
     Route: 048
  2. ASPIRIN [Concomitant]
     Dosage: UNK
     Route: 048
  3. METFORMIN [Concomitant]
     Dosage: 1275 MG, UNK
     Route: 048
  4. RANOLAZINE [Suspect]
     Indication: ANGINA PECTORIS
     Dosage: 375 MG, QD
     Route: 048
     Dates: start: 20110928, end: 20111010
  5. MOLSIDOMIN [Concomitant]
     Dosage: UNK
     Route: 048
  6. VOTUM                              /01635402/ [Concomitant]
     Dosage: 20 MG, QD
     Route: 048
  7. FLUVASTATIN SODIUM [Concomitant]
     Dosage: UNK
     Route: 048

REACTIONS (2)
  - ANGINA PECTORIS [None]
  - CONDITION AGGRAVATED [None]
